FAERS Safety Report 11708811 (Version 1)
Quarter: 2015Q4

REPORT INFORMATION
  Report Type: Spontaneous
  Country: US (occurrence: US)
  Receive Date: 20151104
  Receipt Date: 20151104
  Transmission Date: 20160304
  Serious: No
  Sender: FDA-Public Use
  Company Number: US-ELI_LILLY_AND_COMPANY-US201104003395

PATIENT
  Age: 71 Year
  Sex: Female

DRUGS (7)
  1. FORTEO [Suspect]
     Active Substance: TERIPARATIDE
     Dosage: 20 UG, UNK
  2. XALATAN [Concomitant]
     Active Substance: LATANOPROST
  3. AGGRENOX [Concomitant]
     Active Substance: ASPIRIN\DIPYRIDAMOLE
  4. LUXIQ [Concomitant]
     Active Substance: BETAMETHASONE VALERATE
     Indication: PSORIASIS
     Dosage: UNK, BID
     Route: 061
  5. DERMA-SMOOTHE FS [Concomitant]
  6. LIPITOR [Concomitant]
     Active Substance: ATORVASTATIN CALCIUM
  7. PENTOXIFYLLINE. [Concomitant]
     Active Substance: PENTOXIFYLLINE

REACTIONS (20)
  - Seborrhoeic keratosis [Recovering/Resolving]
  - Pruritus [Unknown]
  - Actinic keratosis [Recovered/Resolved]
  - Skin ulcer [Unknown]
  - Pruritus [Recovered/Resolved]
  - Injection site pain [Unknown]
  - Arthropod bite [Unknown]
  - Eczema nummular [Unknown]
  - Seborrhoeic keratosis [Unknown]
  - Erythema [Unknown]
  - Wound secretion [Recovered/Resolved]
  - Dry skin [Unknown]
  - Actinic keratosis [Unknown]
  - Lentigo [Unknown]
  - Incision site pain [Recovered/Resolved]
  - Pain [Recovered/Resolved]
  - Squamous cell carcinoma [Unknown]
  - Purpura [Unknown]
  - Actinic keratosis [Recovering/Resolving]
  - Pruritus [Recovering/Resolving]

NARRATIVE: CASE EVENT DATE: 200702
